FAERS Safety Report 4502976-0 (Version None)
Quarter: 2004Q4

REPORT INFORMATION
  Report Type: 
  Country: None (occurrence: None)
  Receive Date: 20041112
  Receipt Date: 20041029
  Transmission Date: 20050328
  Serious: Yes (Death, Other)
  Sender: FDA-Public Use
  Company Number: 2004059926

PATIENT
  Age: 68 Year
  Sex: Male

DRUGS (6)
  1. CEREBYX [Suspect]
     Indication: PROPHYLAXIS
     Dosage: INTRAVENOUS
     Route: 042
     Dates: start: 20040730, end: 20040808
  2. DILANTIN [Suspect]
     Indication: ILL-DEFINED DISORDER
     Dates: start: 20040101, end: 20040812
  3. DOPAMINE (DOPAMINE) [Suspect]
     Indication: HYPOTENSION
     Dosage: INTRAVENOUS
     Route: 042
     Dates: end: 20040812
  4. NOREPINEPHRINE BITARTRATE (NOREPINEPHRINE BITARTRATE) [Suspect]
     Indication: HYPOTENSION
     Dosage: INTRAVENOUS
     Route: 042
     Dates: start: 20040101, end: 20040812
  5. CEFTRIAXONE [Concomitant]
  6. SALBUTAMOL (SALBUTAMOL) [Concomitant]

REACTIONS (18)
  - ANURIA [None]
  - ARRHYTHMIA [None]
  - ATRIOVENTRICULAR BLOCK FIRST DEGREE [None]
  - BLOOD PRESSURE DECREASED [None]
  - CARDIAC ARREST [None]
  - CONVULSION [None]
  - ELECTROCARDIOGRAM T WAVE ABNORMAL [None]
  - HEART RATE INCREASED [None]
  - HYPERKALAEMIA [None]
  - METABOLIC ACIDOSIS [None]
  - MULTI-ORGAN FAILURE [None]
  - MYOCARDIAL INFARCTION [None]
  - RENAL FAILURE ACUTE [None]
  - RENAL TUBULAR NECROSIS [None]
  - RESPIRATORY DISTRESS [None]
  - RESPIRATORY FAILURE [None]
  - SINUS TACHYCARDIA [None]
  - URINE OUTPUT DECREASED [None]
